FAERS Safety Report 9852131 (Version 1)
Quarter: 2013Q4

REPORT INFORMATION
  Report Type: Spontaneous
  Country: US (occurrence: None)
  Receive Date: 20131127
  Receipt Date: 20131127
  Transmission Date: 20140711
  Serious: Yes (Other)
  Sender: FDA-Public Use
  Company Number: 223631LEO

PATIENT
  Sex: Female

DRUGS (1)
  1. PICATO [Suspect]
     Indication: ACTINIC KERATOSIS
     Dosage: 1 IN 1 D
     Route: 061
     Dates: start: 201305, end: 201305

REACTIONS (5)
  - Application site scab [None]
  - Application site erythema [None]
  - Skin atrophy [None]
  - Product label issue [None]
  - Drug administered at inappropriate site [None]
